FAERS Safety Report 12059489 (Version 1)
Quarter: 2016Q1

REPORT INFORMATION
  Report Type: Spontaneous
  Country: US (occurrence: None)
  Receive Date: 20160209
  Receipt Date: 20160209
  Transmission Date: 20160526
  Serious: Yes (Hospitalization)
  Sender: FDA-Public Use
  Company Number: None

PATIENT
  Age: 75 Year
  Sex: Male
  Weight: 96 kg

DRUGS (1)
  1. CEFTAROLINE [Suspect]
     Active Substance: CEFTAROLINE
     Indication: ARTHRITIS INFECTIVE
     Route: 042
     Dates: start: 20151231, end: 20160116

REACTIONS (3)
  - Tubulointerstitial nephritis [None]
  - Eosinophilia [None]
  - Acute kidney injury [None]

NARRATIVE: CASE EVENT DATE: 20160116
